FAERS Safety Report 5638890-7 (Version None)
Quarter: 2008Q1

REPORT INFORMATION
  Report Type: 
  Country: None (occurrence: None)
  Receive Date: 20080226
  Receipt Date: 20080215
  Transmission Date: 20080703
  Serious: Yes (Hospitalization, Other)
  Sender: FDA-Public Use
  Company Number: US-ROCHE-432363

PATIENT
  Age: 13 Year
  Sex: Female
  Weight: 52.2 kg

DRUGS (24)
  1. ACCUTANE [Suspect]
     Route: 048
     Dates: start: 19970113, end: 19970408
  2. ACCUTANE [Suspect]
     Dosage: ACCUTANE INCREASED TO 80MG EVERY THIRD DAY.
     Route: 048
     Dates: start: 19970408, end: 19970509
  3. ACCUTANE [Suspect]
     Route: 048
     Dates: start: 19970711, end: 19970810
  4. ACCUTANE [Suspect]
     Route: 048
     Dates: start: 19980223, end: 19980325
  5. ACCUTANE [Suspect]
     Route: 048
     Dates: start: 19980727, end: 19980923
  6. ACCUTANE [Suspect]
     Route: 048
     Dates: start: 20001211, end: 20010201
  7. ACCUTANE [Suspect]
     Dosage: 05 FEBRUARY 2001: NOTED PATIENT IS ON ACCUTANE.
     Route: 048
  8. ACCUTANE [Suspect]
     Dosage: 40MG ONCE DAILY ALTERNATING WITH 80MG EVERY THIRD DAY.
     Route: 048
     Dates: start: 20030902, end: 20030930
  9. ACCUTANE [Suspect]
     Dosage: 40MG ONCE DAILY ALTERNATING WITH 80MG EVERY THIRD DAY.
     Route: 048
     Dates: end: 20040107
  10. CLARAVIS [Concomitant]
     Indication: DRUG USE FOR UNKNOWN INDICATION
     Dates: start: 20031001
  11. SPECTAZOLE [Concomitant]
     Route: 061
     Dates: start: 19970312
  12. DERMATOP [Concomitant]
     Dates: start: 20001226
  13. DECADRON [Concomitant]
     Route: 047
     Dates: start: 20031001
  14. ARISTOCORT A [Concomitant]
     Indication: ECZEMA
     Route: 061
     Dates: start: 20031001
  15. EMBELINE E [Concomitant]
     Indication: ECZEMA
     Dosage: APPLIED TO HANDS.
     Route: 061
     Dates: start: 20010109
  16. DIPROLENE [Concomitant]
     Indication: LIP DISORDER
     Dosage: APPLIED TO LIPS.
     Route: 061
     Dates: start: 19970502
  17. THERAMYCIN Z [Concomitant]
     Indication: FOLLICULITIS
     Route: 061
     Dates: start: 19970509
  18. TRIAZ [Concomitant]
     Dosage: DOSING REGIMEN REPORTED AS QHS.
     Route: 061
     Dates: start: 19970913
  19. CYCLOCORT [Concomitant]
     Indication: ASTEATOSIS
     Dosage: APPLIED TO FOREARMS.
     Route: 061
     Dates: start: 19970509
  20. CUTIVATE [Concomitant]
     Indication: ECZEMA
     Dosage: REPORTED INDICATION INCLUDED BOTH DRY LIPS AND ECZEMA.
     Route: 061
     Dates: start: 19970312
  21. WESTCORT [Concomitant]
     Route: 061
     Dates: start: 19970212
  22. PREDNISONE TAB [Concomitant]
     Dosage: DOSING REGIMEN REPORTED AS QOD.
     Route: 048
     Dates: start: 19970202
  23. HIBICLENS [Concomitant]
     Dosage: DOSING REGIMEN REPORTED AS QD TO UNDERARMS.
     Route: 061
     Dates: start: 19970408
  24. EUCERIN [Concomitant]
     Dosage: DOSING REGIMEN REPORTED AS AFTER SHOWER TO ARMS AND FOREARMS.
     Route: 061
     Dates: start: 19970212

REACTIONS (32)
  - ANXIETY [None]
  - ASTEATOSIS [None]
  - BACK PAIN [None]
  - BRONCHITIS [None]
  - CHEILITIS [None]
  - CLOSTRIDIUM DIFFICILE TOXIN TEST [None]
  - COLITIS [None]
  - COLITIS ULCERATIVE [None]
  - CROHN'S DISEASE [None]
  - DEPRESSION [None]
  - DRY EYE [None]
  - DYSPEPSIA [None]
  - ECZEMA [None]
  - EPISTAXIS [None]
  - FOLLICULITIS [None]
  - GASTROENTERITIS VIRAL [None]
  - HAEMANGIOMA [None]
  - INFLAMMATORY BOWEL DISEASE [None]
  - LIP DRY [None]
  - NAIL DISORDER [None]
  - OCULAR HYPERAEMIA [None]
  - ONYCHOMYCOSIS [None]
  - PEPTIC ULCER [None]
  - PLEURISY [None]
  - PNEUMONIA [None]
  - PROCTITIS [None]
  - RIB FRACTURE [None]
  - SUICIDAL IDEATION [None]
  - TREMOR [None]
  - VIRAL PHARYNGITIS [None]
  - VISUAL ACUITY REDUCED [None]
  - VOMITING [None]
